FAERS Safety Report 6490916-7 (Version None)
Quarter: 2009Q4

REPORT INFORMATION
  Report Type: 
  Country: None (occurrence: None)
  Receive Date: 20091208
  Receipt Date: 20091130
  Transmission Date: 20100525
  Serious: Yes (Death, Other)
  Sender: FDA-Public Use
  Company Number: 2009US004231

PATIENT
  Age: 18 Year
  Sex: Male

DRUGS (4)
  1. PROGRAF [Suspect]
     Indication: PROPHYLAXIS AGAINST GRAFT VERSUS HOST DISEASE
     Dosage: 0.03 MG/KG, UID/QD, IV NOS
     Route: 042
  2. SIROLIMUS (RAPAMUNE) [Suspect]
     Indication: PROPHYLAXIS AGAINST GRAFT VERSUS HOST DISEASE
     Dosage: ORAL
  3. METHOTREXATE [Suspect]
     Indication: PROPHYLAXIS AGAINST GRAFT VERSUS HOST DISEASE
     Dosage: 5 MG/M2, UID/QD , IV NOS
  4. CYCLOPHOSPHAMIDE [Suspect]
     Indication: CORD BLOOD TRANSPLANT THERAPY
     Dosage: 60 MG/KG, UID/QD

REACTIONS (10)
  - ADENOVIRUS INFECTION [None]
  - ASCITES [None]
  - CYSTITIS VIRAL [None]
  - INFECTION [None]
  - INFLUENZA [None]
  - MULTI-ORGAN FAILURE [None]
  - PULMONARY HAEMORRHAGE [None]
  - RESPIRATORY FAILURE [None]
  - ROTAVIRUS INFECTION [None]
  - VENOOCCLUSIVE DISEASE [None]
